FAERS Safety Report 6359675-2 (Version None)
Quarter: 2009Q3

REPORT INFORMATION
  Report Type: 
  Country: None (occurrence: None)
  Receive Date: 20090917
  Receipt Date: 20090901
  Transmission Date: 20100115
  Serious: Yes (Life-Threatening, Hospitalization, Disabling, Other)
  Sender: FDA-Public Use
  Company Number: DE-NAPPMUNDI-DEU-2009-0005471

PATIENT
  Age: 65 Year
  Sex: Male

DRUGS (3)
  1. MORPHINE SULFATE INJ [Suspect]
     Indication: PAIN
     Dosage: 320 MG, SINGLE
     Route: 037
     Dates: start: 20060614
  2. MORPHINE SULFATE INJ [Suspect]
     Dosage: 10 MG, DAILY
     Route: 037
  3. HYDROCHLORIC ACID [Suspect]
     Route: 037

REACTIONS (19)
  - ACCIDENTAL OVERDOSE [None]
  - AMNESIA [None]
  - ANXIETY [None]
  - CARDIOVASCULAR INSUFFICIENCY [None]
  - CHEST PAIN [None]
  - COGNITIVE DISORDER [None]
  - CONVULSION [None]
  - DEPRESSION [None]
  - HAEMATEMESIS [None]
  - HEADACHE [None]
  - HYPERAESTHESIA [None]
  - HYPERTENSIVE CRISIS [None]
  - INCORRECT DOSE ADMINISTERED [None]
  - MENTAL DISORDER [None]
  - MYOCARDIAL INFARCTION [None]
  - PULMONARY OEDEMA [None]
  - RESPIRATORY FAILURE [None]
  - SUPRAVENTRICULAR TACHYCARDIA [None]
  - SYSTEMIC INFLAMMATORY RESPONSE SYNDROME [None]
